FAERS Safety Report 22234891 (Version 1)
Quarter: 2023Q2

REPORT INFORMATION
  Report Type: Spontaneous
  Country: US (occurrence: None)
  Receive Date: 20230419
  Receipt Date: 20230419
  Transmission Date: 20230721
  Serious: No
  Sender: FDA-Public Use
  Company Number: None

PATIENT
  Age: 89 Year
  Sex: Male
  Weight: 97.7 kg

DRUGS (8)
  1. ABIRATERONE [Suspect]
     Active Substance: ABIRATERONE
     Indication: Prostate cancer
     Dosage: FREQUENCY : DAILY;?
     Route: 048
     Dates: start: 202208
  2. ATORVASTATIN [Concomitant]
  3. FLUOXETINE [Concomitant]
  4. GLIPIZIDE [Concomitant]
     Active Substance: GLIPIZIDE
  5. LIDOCAINE [Concomitant]
  6. LUPRON [Concomitant]
  7. OXYBUTYNIN [Concomitant]
  8. PRENISONE [Concomitant]

REACTIONS (3)
  - Prostate cancer [None]
  - Malignant neoplasm progression [None]
  - Prostatic specific antigen increased [None]
